FAERS Safety Report 9253169 (Version 1)
Quarter: 2013Q2

REPORT INFORMATION
  Report Type: Spontaneous
  Country: US (occurrence: US)
  Receive Date: 20130424
  Receipt Date: 20130424
  Transmission Date: 20140414
  Serious: No
  Sender: FDA-Public Use
  Company Number: US-009507513-1304USA014886

PATIENT
  Age: 16 Year
  Sex: Male
  Weight: 72.56 kg

DRUGS (1)
  1. CLARITIN REDITABS [Suspect]
     Indication: SEASONAL ALLERGY
     Dosage: 10 MG, BID
     Route: 048
     Dates: start: 20130415

REACTIONS (1)
  - Accidental overdose [Recovering/Resolving]
